FAERS Safety Report 18490824 (Version 1)
Quarter: 2020Q4

REPORT INFORMATION
  Report Type: Spontaneous
  Country: SE (occurrence: SE)
  Receive Date: 20201111
  Receipt Date: 20201111
  Transmission Date: 20210114
  Serious: Yes (Death, Life-Threatening, Hospitalization, Other)
  Sender: FDA-Public Use
  Company Number: NVSC2020SE301929

PATIENT
  Age: 4 Year
  Sex: Male

DRUGS (7)
  1. CAPTOPRIL. [Suspect]
     Active Substance: CAPTOPRIL
     Dosage: 18.75 MG, QD
     Route: 048
     Dates: start: 20170703, end: 20190729
  2. SPIRONOLAKTON [Concomitant]
     Active Substance: SPIRONOLACTONE
     Indication: PRODUCT USED FOR UNKNOWN INDICATION
     Dosage: UNK
     Route: 065
  3. IMPUGAN [Concomitant]
     Active Substance: FUROSEMIDE
     Indication: PRODUCT USED FOR UNKNOWN INDICATION
     Route: 065
  4. CAPTOPRIL. [Suspect]
     Active Substance: CAPTOPRIL
     Dosage: 18 MG, QD
     Route: 048
     Dates: start: 201510, end: 20170702
  5. CAPTOPRIL. [Suspect]
     Active Substance: CAPTOPRIL
     Indication: CARDIAC FAILURE
     Dosage: 6 MG  (1 MG/ML (6MGX3))
     Route: 065
     Dates: start: 2015, end: 201706
  6. CAPTOPRIL. [Suspect]
     Active Substance: CAPTOPRIL
     Dosage: 6.25 MG
     Route: 048
     Dates: start: 201706, end: 2019
  7. LANOXIN [Concomitant]
     Active Substance: DIGOXIN
     Indication: PRODUCT USED FOR UNKNOWN INDICATION
     Dosage: UNK
     Route: 065
     Dates: start: 20151204, end: 2019

REACTIONS (11)
  - Epistaxis [Unknown]
  - Vomiting [Unknown]
  - Haemorrhage [Unknown]
  - Aplastic anaemia [Unknown]
  - Colitis [Fatal]
  - Respiration abnormal [Unknown]
  - Diarrhoea [Unknown]
  - Pancytopenia [Fatal]
  - Loss of consciousness [Unknown]
  - Contusion [Unknown]
  - Fatigue [Unknown]

NARRATIVE: CASE EVENT DATE: 2019
